FAERS Safety Report 12485702 (Version 6)
Quarter: 2017Q1

REPORT INFORMATION
  Report Type: Spontaneous
  Country: US (occurrence: US)
  Receive Date: 20160621
  Receipt Date: 20170202
  Transmission Date: 20170428
  Serious: Yes (Hospitalization)
  Sender: FDA-Public Use
  Company Number: US-JNJFOC-20160617225

PATIENT
  Sex: Male

DRUGS (7)
  1. RISPERDAL CONSTA [Suspect]
     Active Substance: RISPERIDONE
     Indication: ANXIETY
     Route: 065
  2. RISPERDAL [Suspect]
     Active Substance: RISPERIDONE
     Indication: AGITATION
     Route: 048
     Dates: start: 2006
  3. RISPERDAL CONSTA [Suspect]
     Active Substance: RISPERIDONE
     Indication: AGITATION
     Route: 065
  4. TYLENOL [Concomitant]
     Active Substance: ACETAMINOPHEN
     Route: 065
  5. RISPERDAL [Suspect]
     Active Substance: RISPERIDONE
     Indication: AGITATION
     Dosage: AFTER RISPERIDONE LAI.
     Route: 048
     Dates: start: 20140304
  6. RISPERDAL [Suspect]
     Active Substance: RISPERIDONE
     Indication: ANXIETY
     Route: 048
     Dates: start: 2006
  7. RISPERDAL [Suspect]
     Active Substance: RISPERIDONE
     Indication: ANXIETY
     Dosage: AFTER RISPERIDONE LAI.
     Route: 048
     Dates: start: 20140304

REACTIONS (13)
  - Dehydration [Unknown]
  - Hospitalisation [Unknown]
  - Mental disorder [Unknown]
  - Impaired healing [Unknown]
  - Drug administration error [Unknown]
  - Type 2 diabetes mellitus [Not Recovered/Not Resolved]
  - Unevaluable event [Unknown]
  - Drug dose omission [Unknown]
  - Product use issue [Unknown]
  - Amnesia [Not Recovered/Not Resolved]
  - Off label use [Unknown]
  - Inadequate diet [Unknown]
  - Adverse event [Unknown]

NARRATIVE: CASE EVENT DATE: 2014
